FAERS Safety Report 20140779 (Version 1)
Quarter: 2021Q4

REPORT INFORMATION
  Report Type: Report from Study
  Country: BR (occurrence: BR)
  Receive Date: 20211202
  Receipt Date: 20211202
  Transmission Date: 20220303
  Serious: Yes (Other)
  Sender: FDA-Public Use
  Company Number: BR-NOVARTISPH-NVSC2020BR306324

PATIENT
  Sex: Female

DRUGS (2)
  1. TIMOLOL MALEATE\TRAVOPROST [Suspect]
     Active Substance: TIMOLOL MALEATE\TRAVOPROST
     Indication: Glaucoma
     Dosage: UNK (START: 5 YEARS AGO)
     Route: 047
     Dates: end: 202002
  2. LANOTAN [Concomitant]
     Indication: Glaucoma
     Dosage: UNK (START: 4 MONTHS AGO AND STOPPED: 4 MONTHS AGO)
     Route: 065

REACTIONS (1)
  - Drug dependence [Unknown]
